FAERS Safety Report 17401546 (Version 1)
Quarter: 2020Q1

REPORT INFORMATION
  Report Type: Spontaneous
  Country: US (occurrence: US)
  Receive Date: 20200211
  Receipt Date: 20200211
  Transmission Date: 20200409
  Serious: Yes (Other)
  Sender: FDA-Public Use
  Company Number: US-SA-2020SA033638

PATIENT

DRUGS (11)
  1. SINGULAIR [Concomitant]
     Active Substance: MONTELUKAST SODIUM
     Dosage: 10 MG, 30 MIN PRIOR TO ALEMTUZUMAB DAYS 1,3 ,5
     Route: 048
  2. PEPCID [Concomitant]
     Active Substance: FAMOTIDINE
     Dosage: 20 MG 2 ML IN D5W 50ML OVER 15
     Route: 042
  3. BENADRYL [Concomitant]
     Active Substance: DIPHENHYDRAMINE HYDROCHLORIDE
     Dosage: 25 MG 0.5 ML 30 MIN BEFORE CAMPATH
  4. CAMPATH [Suspect]
     Active Substance: ALEMTUZUMAB
     Indication: T-CELL PROLYMPHOCYTIC LEUKAEMIA
     Dosage: 0.5 MG
     Route: 041
  5. CAMPATH [Suspect]
     Active Substance: ALEMTUZUMAB
     Dosage: 3 MG
     Route: 041
  6. ZYRTEC [Concomitant]
     Active Substance: CETIRIZINE HYDROCHLORIDE
     Dosage: 10 MG, 30 MIN PRIOR TO ALEMTUZUMAB
     Route: 048
  7. HYDROCORTISONE. [Concomitant]
     Active Substance: HYDROCORTISONE
     Indication: PREMEDICATION
     Dosage: 200 MG, 30 MIN PRIOR TO ALEMTUZUMAB
     Route: 042
  8. CAMPATH [Suspect]
     Active Substance: ALEMTUZUMAB
     Dosage: 30 MG
     Route: 041
  9. CAMPATH [Suspect]
     Active Substance: ALEMTUZUMAB
     Dosage: 1 MG
     Route: 041
  10. CAMPATH [Suspect]
     Active Substance: ALEMTUZUMAB
     Dosage: 10 MG
     Route: 041
  11. TYLENOL [Concomitant]
     Active Substance: ACETAMINOPHEN
     Dosage: 1000 MG, 30 MIN PRIOR TO ALEMTUZUMAB
     Route: 048

REACTIONS (3)
  - Dizziness [Unknown]
  - Bradycardia [Unknown]
  - Hypotension [Unknown]

NARRATIVE: CASE EVENT DATE: 20200129
